FAERS Safety Report 8501631-X (Version None)
Quarter: 2012Q3

REPORT INFORMATION
  Report Type: 
  Country: None (occurrence: None)
  Receive Date: 20120711
  Receipt Date: 20120703
  Transmission Date: 20120928
  Serious: Yes (Other)
  Sender: FDA-Public Use
  Company Number: US-AMGEN-USASP2012041360

PATIENT
  Age: 18 Year
  Sex: Female

DRUGS (1)
  1. ENBREL [Suspect]
     Indication: PSORIATIC ARTHROPATHY
     Dosage: 50 MG, QWK
     Dates: start: 20110119, end: 20120301

REACTIONS (7)
  - INTESTINAL ULCER [None]
  - HAEMATEMESIS [None]
  - NAUSEA [None]
  - NASOPHARYNGITIS [None]
  - GASTRIC ULCER [None]
  - DIARRHOEA HAEMORRHAGIC [None]
  - APPETITE DISORDER [None]
